FAERS Safety Report 9381804 (Version 5)
Quarter: 2013Q3

REPORT INFORMATION
  Report Type: Report from Study
  Country: GB (occurrence: GB)
  Receive Date: 20130703
  Receipt Date: 20130731
  Transmission Date: 20140515
  Serious: Yes (Hospitalization, Other)
  Sender: FDA-Public Use
  Company Number: PHHY2013GB067245

PATIENT
  Sex: 0

DRUGS (3)
  1. AFINITOR [Suspect]
     Indication: BREAST CANCER METASTATIC
     Dosage: 10 MG, QD
     Route: 048
     Dates: start: 20130502, end: 20130625
  2. EXEMESTANE [Suspect]
     Indication: BREAST CANCER METASTATIC
     Dosage: 25 MG, QD
     Route: 048
     Dates: start: 20130502
  3. OMEPRAZOLE [Concomitant]
     Indication: REFLUX GASTRITIS
     Dosage: 40 MG, UNK
     Route: 048
     Dates: start: 20130626

REACTIONS (4)
  - Muscular weakness [Recovering/Resolving]
  - Neuropathy peripheral [Recovering/Resolving]
  - Metastases to spine [Not Recovered/Not Resolved]
  - Metastases to liver [Not Recovered/Not Resolved]
